FAERS Safety Report 9587619 (Version 1)
Quarter: 2013Q4

REPORT INFORMATION
  Report Type: Spontaneous
  Country: GB (occurrence: GB)
  Receive Date: 20131003
  Receipt Date: 20131003
  Transmission Date: 20140711
  Serious: Yes (Other)
  Sender: FDA-Public Use
  Company Number: GB-ROXANE LABORATORIES, INC.-2013-RO-01608RO

PATIENT
  Age: 37 Year
  Sex: Male

DRUGS (1)
  1. LITHIUM CARBONATE [Suspect]
     Indication: SCHIZOPHRENIA, PARANOID TYPE
     Dosage: 1.2 G

REACTIONS (3)
  - Nephrogenic diabetes insipidus [Not Recovered/Not Resolved]
  - Thyroiditis [Recovered/Resolved]
  - Hyperparathyroidism primary [Recovered/Resolved]
